FAERS Safety Report 8271391-9 (Version None)
Quarter: 2012Q2

REPORT INFORMATION
  Report Type: 
  Country: None (occurrence: None)
  Receive Date: 20120410
  Receipt Date: 20120309
  Transmission Date: 20120825
  Serious: No
  Sender: FDA-Public Use
  Company Number: US-NOVEN-12US004258

PATIENT
  Sex: Female
  Weight: 63.492 kg

DRUGS (14)
  1. OMEPRAZOLE [Concomitant]
     Indication: GASTROOESOPHAGEAL REFLUX DISEASE
  2. ASPIRIN [Concomitant]
     Indication: PRODUCT USED FOR UNKNOWN INDICATION
     Dosage: 81 MG, QD
     Route: 048
  3. OXYCODONE HCL [Concomitant]
     Indication: PRODUCT USED FOR UNKNOWN INDICATION
     Dosage: 15 MG, QD
     Route: 048
  4. OMEPRAZOLE [Concomitant]
     Indication: DYSPEPSIA
     Dosage: 40 MG, QD
     Route: 048
  5. DICLOFENAC SODIUM [Concomitant]
     Indication: OSTEOARTHRITIS
     Dosage: 75 MG, BID
     Route: 048
  6. TRAZODONE HCL [Concomitant]
     Indication: PRODUCT USED FOR UNKNOWN INDICATION
     Dosage: 150 MG, BEDTIME
     Route: 048
  7. VITAMIIN C [Concomitant]
     Indication: PRODUCT USED FOR UNKNOWN INDICATION
     Route: 048
  8. CYCLOBENZAPRINE [Concomitant]
     Indication: PRODUCT USED FOR UNKNOWN INDICATION
     Dosage: 10 MG, BID
     Route: 048
  9. IMIPRAMINE [Concomitant]
     Indication: INSOMNIA
  10. ADDERALL 5 [Concomitant]
     Indication: SOMNOLENCE
     Dosage: 30 MG, 2 TABLETS IN MORNING
     Route: 048
  11. FENTANYL CITRATE [Suspect]
     Indication: PAIN
     Dosage: 25 UG/HR, UNK
     Route: 062
     Dates: start: 20120228
  12. IMIPRAMINE [Concomitant]
     Indication: PAIN
     Dosage: 50 MG, 2 TABLETS AT BEDTIME
     Route: 048
  13. CALCIUM CARBONATE [Concomitant]
     Indication: PRODUCT USED FOR UNKNOWN INDICATION
     Route: 048
  14. CITALOPRAM HYDROBROMIDE [Concomitant]
     Indication: AGGRESSION
     Dosage: 20 MG, QD
     Route: 048

REACTIONS (2)
  - DRUG ADMINISTRATION ERROR [None]
  - PRODUCT QUALITY ISSUE [None]
